FAERS Safety Report 4507153-5 (Version None)
Quarter: 2005Q1

REPORT INFORMATION
  Report Type: 
  Country: None (occurrence: None)
  Receive Date: 20041025
  Receipt Date: 20040520
  Transmission Date: 20050727
  Serious: Yes (Hospitalization)
  Sender: FDA-Public Use
  Company Number: US-JNJFOC-20040504748

PATIENT
  Age: 73 Year
  Sex: Female

DRUGS (16)
  1. INFLIXIMAB (INFLIXIMAB, RECOMBINANT) LYOPHILIZED POWDER [Suspect]
     Indication: RHEUMATOID ARTHRITIS
     Dosage: , IN 8 WEEK, INTRAVENOUS
     Route: 042
     Dates: start: 20000920
  2. TRILISATE (TRILISATE) [Concomitant]
  3. POTASSIUM (POTASSIUM) [Concomitant]
  4. OSCAL (CALCIUM CARBONATE) [Concomitant]
  5. PROPENOL (PROPRANOLOL) TABLETS [Concomitant]
  6. NORVASC [Concomitant]
  7. MECLIZINE [Concomitant]
  8. FOLIC ACID [Concomitant]
  9. PREDNISONE [Concomitant]
  10. FUROSEMIDE [Concomitant]
  11. COUMADIN [Concomitant]
  12. METHOTREXATE [Concomitant]
  13. NEXIUM [Concomitant]
  14. FOSAMAX [Concomitant]
  15. ADVAIR DISKUS 100/50 [Concomitant]
  16. OXYGEN (OXYGEN) [Concomitant]

REACTIONS (1)
  - CHOLECYSTITIS [None]
